FAERS Safety Report 5834271-1 (Version None)
Quarter: 2008Q3

REPORT INFORMATION
  Report Type: 
  Country: None (occurrence: None)
  Receive Date: 20080805
  Receipt Date: 20080728
  Transmission Date: 20090109
  Serious: Yes (Other)
  Sender: FDA-Public Use
  Company Number: PHHY2008CA16171

PATIENT

DRUGS (4)
  1. DIOVAN [Suspect]
     Indication: HYPERTENSION
     Route: 048
  2. CALCIUM CHANNEL BLOCKERS [Concomitant]
     Indication: HYPERTENSION
  3. DIURETICS [Concomitant]
     Indication: HYPERTENSION
  4. ACE INHIBITOR NOS [Concomitant]
     Indication: HYPERTENSION

REACTIONS (4)
  - BLOOD PRESSURE INCREASED [None]
  - DRUG INEFFECTIVE [None]
  - MICROALBUMINURIA [None]
  - SOMNOLENCE [None]
